FAERS Safety Report 25865261 (Version 1)
Quarter: 2025Q3

REPORT INFORMATION
  Report Type: Report from Study
  Country: CA (occurrence: CA)
  Receive Date: 20250930
  Receipt Date: 20250930
  Transmission Date: 20251020
  Serious: Yes (Other)
  Sender: JOHNSON AND JOHNSON
  Company Number: CA-JNJFOC-20250938059

PATIENT
  Age: 17 Year
  Sex: Female
  Weight: 29.9 kg

DRUGS (1)
  1. REMICADE [Suspect]
     Active Substance: INFLIXIMAB
     Indication: Crohn^s disease
     Dosage: LAST ADMINISTRATION DATE: 23-SEP-2025
     Route: 041

REACTIONS (2)
  - Female genital tract fistula [Unknown]
  - Off label use [Unknown]
